FAERS Safety Report 16573005 (Version 2)
Quarter: 2019Q3

REPORT INFORMATION
  Report Type: Spontaneous
  Country: US (occurrence: US)
  Receive Date: 20190715
  Receipt Date: 20190819
  Transmission Date: 20191004
  Serious: No
  Sender: FDA-Public Use
  Company Number: US-SA-2019SA190721

PATIENT
  Age: 54 Year
  Sex: Female
  Weight: 64.4 kg

DRUGS (2)
  1. LUMIZYME [Suspect]
     Active Substance: ALGLUCOSIDASE ALFA
     Indication: GLYCOGEN STORAGE DISEASE TYPE II
     Dosage: 20 MG/KG,  QOW
     Route: 042
  2. LUMIZYME [Suspect]
     Active Substance: ALGLUCOSIDASE ALFA
     Dosage: 1250 MG, QOW
     Route: 042

REACTIONS (2)
  - Back pain [Not Recovered/Not Resolved]
  - Nausea [Unknown]
